FAERS Safety Report 9351082 (Version 1)
Quarter: 2013Q2

REPORT INFORMATION
  Report Type: Spontaneous
  Country: GB (occurrence: GB)
  Receive Date: 20130617
  Receipt Date: 20130617
  Transmission Date: 20140414
  Serious: Yes (Other)
  Sender: FDA-Public Use
  Company Number: GB-JNJFOC-20130607655

PATIENT
  Age: 63 Year
  Sex: Female

DRUGS (8)
  1. XARELTO [Suspect]
     Indication: THROMBOSIS PROPHYLAXIS
     Route: 048
     Dates: start: 20130416, end: 20130522
  2. XARELTO [Suspect]
     Indication: PULMONARY EMBOLISM
     Route: 048
     Dates: start: 20130416, end: 20130522
  3. LANSOPRAZOLE [Concomitant]
     Route: 065
  4. MIRTAZAPINE [Concomitant]
     Route: 065
  5. WARFARIN [Concomitant]
     Route: 065
  6. ZAPAIN [Concomitant]
     Route: 065
  7. CLONAZEPAM [Concomitant]
     Route: 065
  8. OLANZAPINE [Concomitant]
     Route: 065

REACTIONS (1)
  - Renal failure acute [Recovering/Resolving]
